FAERS Safety Report 9821241 (Version 1)
Quarter: 2013Q4

REPORT INFORMATION
  Report Type: Spontaneous
  Country: US (occurrence: None)
  Receive Date: 20131028
  Receipt Date: 20131028
  Transmission Date: 20140711
  Serious: Yes (Other)
  Sender: FDA-Public Use
  Company Number: 2013US001178

PATIENT
  Age: 54 Year
  Sex: Male
  Weight: 102 kg

DRUGS (4)
  1. ICLUSIG [Suspect]
     Indication: CHRONIC MYELOID LEUKAEMIA
     Route: 048
     Dates: start: 20130207
  2. SYNTHROID (LEVOTHYROXINE SODIUM) [Concomitant]
  3. CALCIUM (CALCIUM) [Concomitant]
  4. VITAMIN D (VITAMIN D) [Concomitant]

REACTIONS (2)
  - Dry skin [None]
  - Muscle spasms [None]
